FAERS Safety Report 17648809 (Version 7)
Quarter: 2020Q4

REPORT INFORMATION
  Report Type: Spontaneous
  Country: US (occurrence: US)
  Receive Date: 20200408
  Receipt Date: 20201020
  Transmission Date: 20210113
  Serious: Yes (Other)
  Sender: FDA-Public Use
  Company Number: US-GLAXOSMITHKLINE-US2020AMR057475

PATIENT
  Sex: Female

DRUGS (4)
  1. ZEJULA [Suspect]
     Active Substance: NIRAPARIB
     Indication: OVARIAN CANCER
     Dosage: 100 MG, QD
     Dates: start: 20200311
  2. ZEJULA [Suspect]
     Active Substance: NIRAPARIB
     Dosage: 100 MG, QD
  3. ZEJULA [Suspect]
     Active Substance: NIRAPARIB
     Dosage: 100 MG, QD
  4. ZEJULA [Suspect]
     Active Substance: NIRAPARIB
     Dosage: 100 MG, QD
     Route: 048

REACTIONS (17)
  - Arthralgia [Unknown]
  - Disease progression [Unknown]
  - Chromaturia [Not Recovered/Not Resolved]
  - Dyspepsia [Unknown]
  - Abdominal pain upper [Unknown]
  - Nasopharyngitis [Unknown]
  - Urine odour abnormal [Unknown]
  - Escherichia infection [Unknown]
  - Hot flush [Unknown]
  - Therapeutic response unexpected [Unknown]
  - Off label use [Unknown]
  - Haemorrhoids [Recovering/Resolving]
  - Myalgia [Unknown]
  - Flushing [Unknown]
  - Vulval abscess [Unknown]
  - Central nervous system lesion [Not Recovered/Not Resolved]
  - Erythema [Unknown]
